FAERS Safety Report 6716530-3 (Version None)
Quarter: 2010Q2

REPORT INFORMATION
  Report Type: 
  Country: None (occurrence: None)
  Receive Date: 20100507
  Receipt Date: 20100504
  Transmission Date: 20101027
  Serious: Yes (Other)
  Sender: FDA-Public Use
  Company Number: TW-ROXANE LABORATORIES, INC.-2010-RO-00517RO

PATIENT
  Age: 23 Year
  Sex: Male

DRUGS (7)
  1. RISPERIDONE [Suspect]
     Indication: MANIA
  2. RISPERIDONE [Suspect]
     Indication: PSYCHOTIC BEHAVIOUR
  3. RISPERIDONE [Suspect]
     Indication: ABNORMAL BEHAVIOUR
  4. VALPROATE SODIUM [Suspect]
     Indication: MANIA
  5. VALPROATE SODIUM [Suspect]
     Indication: PSYCHOTIC BEHAVIOUR
  6. CLONAZEPAM [Suspect]
     Indication: MANIA
  7. CLONAZEPAM [Suspect]
     Indication: PSYCHOTIC BEHAVIOUR

REACTIONS (2)
  - CENTRAL NERVOUS SYSTEM LESION [None]
  - MOVEMENT DISORDER [None]
